FAERS Safety Report 10301663 (Version 2)
Quarter: 2014Q3

REPORT INFORMATION
  Report Type: Spontaneous
  Country: US (occurrence: US)
  Receive Date: 20140714
  Receipt Date: 20140826
  Transmission Date: 20150326
  Serious: No
  Sender: FDA-Public Use
  Company Number: US-ASTRAZENECA-2014SE48683

PATIENT
  Age: 655 Month
  Sex: Male
  Weight: 158.8 kg

DRUGS (8)
  1. SYMBICORT [Suspect]
     Active Substance: BUDESONIDE\FORMOTEROL FUMARATE DIHYDRATE
     Indication: ASTHMA
     Dosage: 160/4.5 MCG WITH UNKNOWN FREQUENCY
     Route: 055
     Dates: start: 2010
  2. UNKNOWN [Concomitant]
     Active Substance: UNSPECIFIED INGREDIENT
     Indication: ASTHMA
     Dates: start: 2010
  3. UNKNOWN NAME [Concomitant]
     Indication: INHALATION THERAPY
     Route: 055
  4. FISH OIL [Concomitant]
     Active Substance: FISH OIL
     Indication: BLOOD CHOLESTEROL INCREASED
     Route: 048
     Dates: start: 2012
  5. MYCARDIS GENERIC [Concomitant]
     Indication: HYPERTENSION
     Dates: start: 2010
  6. BABY ASPIRIN [Concomitant]
     Active Substance: ASPIRIN
     Indication: CARDIAC DISORDER
     Route: 048
     Dates: start: 1994
  7. GENERIC AMBIEN [Concomitant]
     Indication: SLEEP DISORDER
     Dates: start: 2011
  8. OMEPRAZOLE. [Suspect]
     Active Substance: OMEPRAZOLE
     Indication: GASTROOESOPHAGEAL REFLUX DISEASE
     Route: 048
     Dates: start: 1994

REACTIONS (5)
  - Chest pain [Not Recovered/Not Resolved]
  - Device misuse [Unknown]
  - Cough [Not Recovered/Not Resolved]
  - Tongue disorder [Unknown]
  - Disease recurrence [Not Recovered/Not Resolved]

NARRATIVE: CASE EVENT DATE: 201406
